FAERS Safety Report 12429251 (Version 1)
Quarter: 2016Q2

REPORT INFORMATION
  Report Type: Spontaneous
  Country: US (occurrence: US)
  Receive Date: 20160602
  Receipt Date: 20160602
  Transmission Date: 20160815
  Serious: Yes (Other)
  Sender: FDA-Public Use
  Company Number: US-BAYER-2016-101079

PATIENT
  Sex: Female

DRUGS (1)
  1. AVELOX [Suspect]
     Active Substance: MOXIFLOXACIN HYDROCHLORIDE
     Dosage: UNK
     Dates: start: 20070405

REACTIONS (6)
  - Cardiovascular disorder [None]
  - Mental disorder [None]
  - Neuropathy peripheral [None]
  - Musculoskeletal disorder [None]
  - Nervous system disorder [None]
  - Skin disorder [None]
